FAERS Safety Report 7501655-5 (Version None)
Quarter: 2011Q2

REPORT INFORMATION
  Report Type: 
  Country: None (occurrence: None)
  Receive Date: 20110524
  Receipt Date: 20110512
  Transmission Date: 20111010
  Serious: Yes (Hospitalization, Other)
  Sender: FDA-Public Use
  Company Number: US-ELI_LILLY_AND_COMPANY-US201105005219

PATIENT
  Age: 72 Year
  Sex: Male

DRUGS (2)
  1. ZYPREXA [Suspect]
     Indication: ABNORMAL BEHAVIOUR
     Dosage: 5 MG, UNK
     Dates: start: 20110223
  2. ZYPREXA [Suspect]
     Dosage: 10 MG, UNK

REACTIONS (7)
  - HOSPITALISATION [None]
  - DYSPHAGIA [None]
  - MUSCULOSKELETAL STIFFNESS [None]
  - SPEECH DISORDER [None]
  - CHOKING [None]
  - OFF LABEL USE [None]
  - DYSKINESIA [None]
